FAERS Safety Report 10285422 (Version 1)
Quarter: 2014Q3

REPORT INFORMATION
  Report Type: Spontaneous
  Country: JP (occurrence: JP)
  Receive Date: 20140708
  Receipt Date: 20140708
  Transmission Date: 20150326
  Serious: Yes (Hospitalization)
  Sender: FDA-Public Use
  Company Number: PHHY2014JP083113

PATIENT
  Age: 31 Year
  Sex: Female

DRUGS (7)
  1. GRANULOCYTE COLONY STIMULATING FACTOR [Suspect]
     Active Substance: GRANULOCYTE COLONY-STIMULATING FACTOR NOS
     Dosage: 150 UG, UNK
  2. UTERON [Suspect]
     Active Substance: RITODRINE HYDROCHLORIDE
     Indication: THREATENED LABOUR
     Dosage: 144 MG, UNK
  3. UTERON [Suspect]
     Active Substance: RITODRINE HYDROCHLORIDE
     Indication: THREATENED LABOUR
     Route: 048
  4. MAGNESIUM [Suspect]
     Active Substance: MAGNESIUM
  5. CYSTEINE/GLYCINE/GLYCYRRHIZINATE [Suspect]
     Active Substance: CYSTEINE\GLYCINE\GLYCYRRHIZIN
  6. AMPICILLIN+SULBACTAM [Suspect]
     Active Substance: AMPICILLIN SODIUM\SULBACTAM SODIUM
     Dosage: 3 G, TID
  7. UTERON [Suspect]
     Active Substance: RITODRINE HYDROCHLORIDE
     Dosage: 288 MG, UNK

REACTIONS (9)
  - Agranulocytosis [Recovered/Resolved]
  - Uterine hypertonus [Unknown]
  - Amniotic cavity infection [Unknown]
  - Pyrexia [Unknown]
  - Amniorrhexis [Unknown]
  - Premature delivery [Unknown]
  - Pancytopenia [Unknown]
  - Maternal exposure during pregnancy [Unknown]
  - Hepatic enzyme increased [Recovering/Resolving]
